FAERS Safety Report 7783112-4 (Version None)
Quarter: 2011Q3

REPORT INFORMATION
  Report Type: 
  Country: None (occurrence: None)
  Receive Date: 20110928
  Receipt Date: 20110913
  Transmission Date: 20111222
  Serious: Yes (Hospitalization, Other)
  Sender: FDA-Public Use
  Company Number: PHHY2011BR82562

PATIENT
  Sex: Female

DRUGS (4)
  1. SERETIDE [Concomitant]
     Dosage: UNK UKN, QD
  2. DECADRON [Concomitant]
     Dosage: UNK UKN, UNK
  3. DECADRON [Concomitant]
     Dosage: UNK UKN, UNK
     Dates: start: 20110908
  4. FORMOTEROL FUMARATE [Suspect]
     Indication: BRONCHITIS
     Dosage: UNK UKN, UNK
     Dates: start: 20110701

REACTIONS (8)
  - BRONCHITIS [None]
  - ORAL CANDIDIASIS [None]
  - ORAL DISCOMFORT [None]
  - FEELING HOT [None]
  - DYSPHONIA [None]
  - EAR PAIN [None]
  - CHILLS [None]
  - THROAT IRRITATION [None]
